FAERS Safety Report 8977046 (Version 1)
Quarter: 2012Q4

REPORT INFORMATION
  Report Type: 
  Country: US (occurrence: US)
  Receive Date: 20121220
  Receipt Date: 20121220
  Transmission Date: 20130627
  Serious: No
  Sender: FDA-Public Use
  Company Number: US-VIIV HEALTHCARE LIMITED-A0956927A

PATIENT
  Age: 37 Year
  Sex: Male

DRUGS (3)
  1. TRIZIVIR [Suspect]
     Indication: PRODUCT USED FOR UNKNOWN INDICATION
     Dosage: 1U Twice per day
     Route: 065
  2. ABACAVIR [Suspect]
     Indication: PRODUCT USED FOR UNKNOWN INDICATION
     Dosage: 1U Twice per day
     Route: 065
  3. UNSPECIFIED INGREDIENT [Suspect]

REACTIONS (1)
  - Rash [Unknown]
